FAERS Safety Report 18144779 (Version 1)
Quarter: 2020Q3

REPORT INFORMATION
  Report Type: Spontaneous
  Country: US (occurrence: US)
  Receive Date: 20200812
  Receipt Date: 20200812
  Transmission Date: 20201103
  Serious: No
  Sender: FDA-Public Use
  Company Number: None

PATIENT
  Age: 70 Year
  Sex: Male

DRUGS (1)
  1. DULOXETINE (DULOXETINE HCL 20M,G CAP, EC) [Suspect]
     Active Substance: DULOXETINE HYDROCHLORIDE
     Indication: PAIN
     Route: 048
     Dates: start: 20180731, end: 20180830

REACTIONS (7)
  - Nausea [None]
  - Vomiting [None]
  - Fall [None]
  - Somnolence [None]
  - Diarrhoea [None]
  - Pain [None]
  - Dizziness [None]

NARRATIVE: CASE EVENT DATE: 20180801
